FAERS Safety Report 10540387 (Version 27)
Quarter: 2019Q1

REPORT INFORMATION
  Report Type: Report from Study
  Country: CA (occurrence: CA)
  Receive Date: 20141024
  Receipt Date: 20190309
  Transmission Date: 20190417
  Serious: Yes (Hospitalization, Other)
  Sender: FDA-Public Use
  Company Number: PHHY2011CA65816

PATIENT
  Age: 56 Year
  Sex: Male

DRUGS (12)
  1. XARELTO [Concomitant]
     Active Substance: RIVAROXABAN
     Indication: ANTICOAGULANT THERAPY
     Route: 065
  2. FLOMAX [Concomitant]
     Active Substance: TAMSULOSIN HYDROCHLORIDE
     Indication: PRODUCT USED FOR UNKNOWN INDICATION
     Route: 065
  3. SANDOSTATIN LAR DEPOT [Suspect]
     Active Substance: OCTREOTIDE ACETATE
     Dosage: 20 MG, QMO (EVERY 4 WEEKS)
     Route: 030
     Dates: start: 20150112
  4. CRESTOR [Concomitant]
     Active Substance: ROSUVASTATIN CALCIUM
     Indication: PRODUCT USED FOR UNKNOWN INDICATION
     Dosage: UNK
     Route: 065
  5. BABY ASPIRIN [Concomitant]
     Active Substance: ASPIRIN
     Indication: PRODUCT USED FOR UNKNOWN INDICATION
     Dosage: UNK
     Route: 065
  6. SANDOSTATIN [Suspect]
     Active Substance: OCTREOTIDE ACETATE
     Indication: ACROMEGALY
     Dosage: UNK ONCE- TEST DOSE
     Route: 058
     Dates: start: 20110317, end: 20110317
  7. SANDOSTATIN LAR DEPOT [Suspect]
     Active Substance: OCTREOTIDE ACETATE
     Dosage: 30 MG, QMO
     Route: 030
  8. SANDOSTATIN LAR DEPOT [Suspect]
     Active Substance: OCTREOTIDE ACETATE
     Dosage: 20 MG, QMO
     Route: 030
     Dates: start: 201104, end: 201808
  9. SANDOSTATIN LAR DEPOT [Suspect]
     Active Substance: OCTREOTIDE ACETATE
     Dosage: 20 MG, Q4W
     Route: 030
  10. SANDOSTATIN LAR DEPOT [Suspect]
     Active Substance: OCTREOTIDE ACETATE
     Dosage: 20 MG, QMO
     Route: 030
  11. SANDOSTATIN LAR DEPOT [Suspect]
     Active Substance: OCTREOTIDE ACETATE
     Indication: ACROMEGALY
     Dosage: 20 MG, QMO (EVERY 4 WEEK)
     Route: 030
     Dates: start: 20110416
  12. SANDOSTATIN LAR DEPOT [Suspect]
     Active Substance: OCTREOTIDE ACETATE
     Dosage: 40 MG, QMO
     Route: 030

REACTIONS (27)
  - Anuria [Unknown]
  - Cardiac failure acute [Recovered/Resolved]
  - Dysuria [Unknown]
  - Ventricular extrasystoles [Unknown]
  - Heart rate irregular [Recovered/Resolved]
  - Headache [Unknown]
  - Tendon rupture [Recovering/Resolving]
  - Cardiomegaly [Unknown]
  - Blood growth hormone increased [Unknown]
  - Palpitations [Recovered/Resolved]
  - Blood urine present [Recovered/Resolved]
  - Insulin-like growth factor increased [Unknown]
  - Constipation [Unknown]
  - Cystitis [Unknown]
  - Atrial fibrillation [Recovered/Resolved]
  - Musculoskeletal stiffness [Not Recovered/Not Resolved]
  - Micturition urgency [Unknown]
  - Pain [Unknown]
  - Basal cell carcinoma [Unknown]
  - Cardiac failure congestive [Recovered/Resolved]
  - Muscle spasms [Not Recovered/Not Resolved]
  - Device occlusion [Unknown]
  - Muscle tightness [Unknown]
  - Heart rate increased [Unknown]
  - Injection site mass [Unknown]
  - Blood pressure increased [Unknown]
  - Prostatomegaly [Unknown]

NARRATIVE: CASE EVENT DATE: 20140723
